FAERS Safety Report 4653745-2 (Version None)
Quarter: 2005Q2

REPORT INFORMATION
  Report Type: 
  Country: None (occurrence: None)
  Receive Date: 20050404
  Receipt Date: 20050104
  Transmission Date: 20051028
  Serious: No
  Sender: FDA-Public Use
  Company Number: US_0411108435

PATIENT
  Age: 58 Year
  Sex: Female

DRUGS (16)
  1. CYMBALTA [Suspect]
     Indication: DEPRESSION
     Dosage: 60 MG/1 DAY
     Dates: start: 20040824
  2. HUMULIN 70/30 [Concomitant]
  3. CLONIDINE [Concomitant]
  4. VERAPAMIL [Concomitant]
  5. HYDROCHLOROTHIAZIDE [Concomitant]
  6. LASIX [Concomitant]
  7. DIOVAN [Concomitant]
  8. POTASSIUM CHLORIDE [Concomitant]
  9. NITROQUICK(GLYCERYL TRINITRATE) [Concomitant]
  10. ASPIRIN [Concomitant]
  11. NIASPAN [Concomitant]
  12. PRAVACHOL [Concomitant]
  13. THYROID TAB [Concomitant]
  14. AVANDIA [Concomitant]
  15. TOPAMAX [Concomitant]
  16. WELLBUTRIN [Concomitant]

REACTIONS (1)
  - PROTEIN URINE PRESENT [None]
